FAERS Safety Report 6994231-4 (Version None)
Quarter: 2010Q3

REPORT INFORMATION
  Report Type: 
  Country: None (occurrence: None)
  Receive Date: 20100917
  Receipt Date: 20070608
  Transmission Date: 20110219
  Serious: Yes (Other)
  Sender: FDA-Public Use
  Company Number: US-ASTRAZENECA-2006UW22011

PATIENT
  Age: 18622 Day
  Sex: Male
  Weight: 90.5 kg

DRUGS (18)
  1. SEROQUEL [Suspect]
     Indication: BIPOLAR DISORDER
     Dosage: TOATL DAILY DOSE-600 MG
     Route: 048
     Dates: start: 20010101, end: 20060101
  2. SEROQUEL [Suspect]
     Dosage: 100 MG HS TO 600 MG HS
     Route: 048
     Dates: start: 20040916
  3. ABILIFY [Concomitant]
  4. GEODON [Concomitant]
     Dates: start: 20040916
  5. ZYPREXA [Concomitant]
     Dates: start: 20031002
  6. ZESTRIL [Concomitant]
     Dosage: 20 MG TO 80 MG DAILY
     Route: 048
     Dates: start: 20031104
  7. METOPROLOL [Concomitant]
     Dates: start: 20040916
  8. TRAZODONE HCL [Concomitant]
     Route: 048
     Dates: start: 20040904
  9. CLONIDINE/CATAPRES [Concomitant]
     Dosage: 0.8 MG TO 0.9 MG DAILY
     Dates: start: 20040904
  10. ZOLOFT [Concomitant]
     Dosage: 150 MG TO 200 MG DAILY
     Route: 048
     Dates: start: 20040904
  11. KLONOPIN [Concomitant]
     Dosage: 0.5 MG TO 3 MG
     Dates: start: 20040916
  12. LOPRESSOR [Concomitant]
     Route: 048
     Dates: start: 20040904
  13. SYNTHROID [Concomitant]
     Route: 048
     Dates: start: 20040904
  14. VISTARIL [Concomitant]
     Route: 048
  15. NEURONTIN [Concomitant]
     Dates: start: 20031002
  16. LAMICTAL [Concomitant]
     Dates: start: 20031002
  17. CRESTOR [Concomitant]
     Route: 048
     Dates: start: 20050731
  18. TOPROL-XL [Concomitant]
     Route: 048
     Dates: start: 20050802

REACTIONS (3)
  - DIABETES MELLITUS [None]
  - PANCREATITIS [None]
  - TYPE 2 DIABETES MELLITUS [None]
